FAERS Safety Report 15578063 (Version 1)
Quarter: 2018Q4

REPORT INFORMATION
  Report Type: Spontaneous
  Country: US (occurrence: US)
  Receive Date: 20181102
  Receipt Date: 20181102
  Transmission Date: 20190205
  Serious: No
  Sender: FDA-Public Use
  Company Number: US-ASTRAZENECA-2018SF31366

PATIENT
  Sex: Female
  Weight: 98 kg

DRUGS (2)
  1. BYDUREON [Suspect]
     Active Substance: EXENATIDE
     Indication: TYPE 2 DIABETES MELLITUS
     Route: 058
     Dates: start: 201808
  2. GLIPIZIDE. [Concomitant]
     Active Substance: GLIPIZIDE
     Indication: DIABETES MELLITUS
     Route: 048

REACTIONS (7)
  - Hypophagia [Unknown]
  - Nausea [Unknown]
  - Feeling abnormal [Unknown]
  - Weight decreased [Unknown]
  - Loss of consciousness [Unknown]
  - Diarrhoea [Unknown]
  - Malaise [Unknown]
